FAERS Safety Report 7942638-0 (Version None)
Quarter: 2011Q4

REPORT INFORMATION
  Report Type: 
  Country: None (occurrence: None)
  Receive Date: 20111128
  Receipt Date: 20111127
  Transmission Date: 20120403
  Serious: Yes (Death)
  Sender: FDA-Public Use
  Company Number: US-PFIZER INC-2011288935

PATIENT
  Sex: Male
  Weight: 63.5 kg

DRUGS (11)
  1. SIMETHICONE [Concomitant]
     Dosage: UNK
  2. NIFEDICAL [Concomitant]
     Dosage: UNK
  3. FUROSEMIDE [Concomitant]
     Dosage: UNK
  4. LORAZEPAM [Concomitant]
     Dosage: UNK
  5. SPIRONOLACTONE [Concomitant]
     Dosage: UNK
  6. HYDROCODONE [Concomitant]
     Dosage: UNK
  7. OMEPRAZOLE [Concomitant]
     Dosage: UNK
  8. MORPHINE SULFATE [Suspect]
     Dosage: UNK
  9. PROCHLORPERAZINE [Concomitant]
     Dosage: UNK
  10. GLIPIZIDE [Concomitant]
     Dosage: UNK
  11. NITROSTAT [Suspect]
     Dosage: UNK

REACTIONS (2)
  - DEATH [None]
  - UNEVALUABLE EVENT [None]
